FAERS Safety Report 5336765-4 (Version None)
Quarter: 2007Q2

REPORT INFORMATION
  Report Type: 
  Country: None (occurrence: None)
  Receive Date: 20070529
  Receipt Date: 20070520
  Transmission Date: 20071010
  Serious: Yes (Other)
  Sender: FDA-Public Use
  Company Number: PHRM2007DZ01473

PATIENT
  Age: 32 Year
  Sex: Female

DRUGS (1)
  1. LAMISIL [Suspect]
     Indication: NAIL TINEA
     Route: 048

REACTIONS (2)
  - BLISTER [None]
  - ECZEMA WEEPING [None]
